FAERS Safety Report 6848778-1 (Version None)
Quarter: 2010Q3

REPORT INFORMATION
  Report Type: 
  Country: None (occurrence: None)
  Receive Date: 20100716
  Receipt Date: 20070909
  Transmission Date: 20110219
  Serious: No
  Sender: FDA-Public Use
  Company Number: US-PFIZER INC-2007076167

PATIENT
  Sex: Male

DRUGS (10)
  1. CHANTIX [Suspect]
     Indication: SMOKING CESSATION THERAPY
     Dates: start: 20070801
  2. WELLBUTRIN [Concomitant]
  3. DEPAKOTE [Concomitant]
  4. RISPERIDONE [Concomitant]
  5. LAMICTAL [Concomitant]
  6. LITHIUM [Concomitant]
  7. AMBIEN [Concomitant]
  8. VALTREX [Concomitant]
  9. ERYTHROMYCIN [Concomitant]
  10. PREVACID [Concomitant]

REACTIONS (8)
  - ABDOMINAL DISTENSION [None]
  - ABNORMAL DREAMS [None]
  - ANXIETY [None]
  - CONSTIPATION [None]
  - FATIGUE [None]
  - FEELING ABNORMAL [None]
  - FREQUENT BOWEL MOVEMENTS [None]
  - SOMNOLENCE [None]
